FAERS Safety Report 6290326-1 (Version None)
Quarter: 2009Q3

REPORT INFORMATION
  Report Type: 
  Country: None (occurrence: None)
  Receive Date: 20090730
  Receipt Date: 20090223
  Transmission Date: 20100115
  Serious: No
  Sender: FDA-Public Use
  Company Number: US-BRISTOL-MYERS SQUIBB COMPANY-14522056

PATIENT
  Age: 76 Year
  Sex: Male

DRUGS (2)
  1. COUMADIN [Suspect]
     Dosage: 30JAN09-01FEB09. 02FEB09-CONT
     Dates: start: 20090130
  2. LOVENOX [Suspect]
     Indication: THROMBOSIS
     Dosage: ENOXAPARIN SOLUTION FOR INJECTION
     Dates: start: 20090130, end: 20090210

REACTIONS (1)
  - HYPOAESTHESIA [None]
